FAERS Safety Report 24269539 (Version 7)
Quarter: 2025Q2

REPORT INFORMATION
  Report Type: Report from Study
  Country: CA (occurrence: CA)
  Receive Date: 20240830
  Receipt Date: 20250611
  Transmission Date: 20250716
  Serious: Yes (Other)
  Sender: TAKEDA
  Company Number: CA-TAKEDA-2024TUS085681

PATIENT
  Age: 33 Year
  Sex: Male

DRUGS (7)
  1. VEDOLIZUMAB [Suspect]
     Active Substance: VEDOLIZUMAB
     Indication: Crohn^s disease
  2. VEDOLIZUMAB [Suspect]
     Active Substance: VEDOLIZUMAB
  3. VEDOLIZUMAB [Suspect]
     Active Substance: VEDOLIZUMAB
  4. VEDOLIZUMAB [Suspect]
     Active Substance: VEDOLIZUMAB
  5. VEDOLIZUMAB [Suspect]
     Active Substance: VEDOLIZUMAB
     Dosage: 300 MILLIGRAM, Q4WEEKS
     Dates: start: 20250429
  6. RINVOQ [Concomitant]
     Active Substance: UPADACITINIB
  7. SUCRALFATE [Concomitant]
     Active Substance: SUCRALFATE
     Dosage: UNK UNK, QD

REACTIONS (9)
  - Crohn^s disease [Recovering/Resolving]
  - Haematochezia [Unknown]
  - Abdominal pain [Recovering/Resolving]
  - Faeces soft [Unknown]
  - Ear disorder [Unknown]
  - Off label use [Unknown]
  - Malaise [Unknown]
  - Chest pain [Unknown]
  - Arthralgia [Not Recovered/Not Resolved]

NARRATIVE: CASE EVENT DATE: 20250429
